FAERS Safety Report 12230439 (Version 2)
Quarter: 2016Q2

REPORT INFORMATION
  Report Type: Spontaneous
  Country: US (occurrence: US)
  Receive Date: 20160401
  Receipt Date: 20160629
  Transmission Date: 20160815
  Serious: Yes (Hospitalization, Other)
  Sender: FDA-Public Use
  Company Number: US-WATSON-2016-06970

PATIENT
  Age: 82 Year
  Sex: Female

DRUGS (5)
  1. METOPROLOL TARTRATE. [Concomitant]
     Active Substance: METOPROLOL TARTRATE
     Indication: PRODUCT USED FOR UNKNOWN INDICATION
     Dosage: 25 MG, BID
     Route: 065
  2. FLECAINIDE (UNKNOWN) [Interacting]
     Active Substance: FLECAINIDE
     Indication: PRODUCT USED FOR UNKNOWN INDICATION
     Dosage: 100 MG, BID
     Route: 065
  3. CANDESARTAN-HYDROCHLOROTHIAZIDE [Suspect]
     Active Substance: CANDESARTAN CILEXETIL\HYDROCHLOROTHIAZIDE
     Indication: PRODUCT USED FOR UNKNOWN INDICATION
     Dosage: CANDESARTAN 32MG HYDROCHLOROTHIAZIDE 12.5 MG DAILY
     Route: 065
  4. AMIODARONE (UNKNOWN) [Interacting]
     Active Substance: AMIODARONE
     Indication: PRODUCT USED FOR UNKNOWN INDICATION
     Dosage: 200 MG, UNK
     Route: 065
  5. DOXYCYCLINE (ACTAVIS LABORATORIES FL) [Suspect]
     Active Substance: DOXYCYCLINE
     Indication: LOCALISED INFECTION
     Dosage: UNK
     Route: 065

REACTIONS (10)
  - Electrocardiogram QRS complex prolonged [Recovering/Resolving]
  - Acute kidney injury [Recovered/Resolved]
  - Ventricular arrhythmia [Recovering/Resolving]
  - Metabolic acidosis [Recovered/Resolved]
  - Nausea [Unknown]
  - Drug interaction [Unknown]
  - Hypovolaemia [Recovered/Resolved]
  - Device capturing issue [Recovering/Resolving]
  - Vomiting [Unknown]
  - Drug level above therapeutic [Unknown]
